FAERS Safety Report 18999463 (Version 6)
Quarter: 2021Q2

REPORT INFORMATION
  Report Type: Report from Study
  Country: TR (occurrence: TR)
  Receive Date: 20210312
  Receipt Date: 20210406
  Transmission Date: 20210717
  Serious: Yes (Life-Threatening, Hospitalization)
  Sender: FDA-Public Use
  Company Number: TR-ROCHE-2785554

PATIENT
  Age: 58 Year
  Sex: Male
  Weight: 64 kg

DRUGS (43)
  1. MTIG 7192A [Suspect]
     Active Substance: TIRAGOLUMAB
     Indication: SMALL CELL LUNG CANCER EXTENSIVE STAGE
     Dosage: MOST RECENT DOSE (600 MG) RECEIVED ON 16/FEB/2021 PRIOR TO AE/SAE ONSET.
     Route: 042
     Dates: start: 20210107
  2. METPAMID [Concomitant]
     Active Substance: METOCLOPRAMIDE
     Indication: PROPHYLAXIS
     Route: 042
     Dates: start: 20210115
  3. PROGAS [Concomitant]
     Indication: PROPHYLAXIS
     Route: 042
     Dates: start: 20210115
  4. TRACUTIL (TURKEY) [Concomitant]
     Indication: PROPHYLAXIS
     Route: 048
     Dates: start: 20210217, end: 20210218
  5. GRANEXA [Concomitant]
     Indication: PROPHYLAXIS
     Route: 048
     Dates: start: 20210218
  6. NEUPOGEN [Concomitant]
     Active Substance: FILGRASTIM
     Route: 042
     Dates: start: 20210131, end: 20210204
  7. KAPRIL (TURKEY) [Concomitant]
     Indication: HYPERTENSION
     Route: 048
     Dates: start: 20210307, end: 20210312
  8. FENIRAMIN MALEAT [Concomitant]
     Route: 042
     Dates: start: 20210309, end: 20210309
  9. HEPALORNITIN [Concomitant]
  10. CARBOPLATIN. [Suspect]
     Active Substance: CARBOPLATIN
     Indication: SMALL CELL LUNG CANCER EXTENSIVE STAGE
     Dosage: MOST RECENT DOSE (562 MG) RECEIVED ON 16/FEB/2021 PRIOR TO AE/SAE ONSET.
     Route: 042
     Dates: start: 20210107
  11. PLAVIX [Concomitant]
     Active Substance: CLOPIDOGREL BISULFATE
     Route: 048
     Dates: start: 20210120
  12. CONTRAMAL [Concomitant]
     Active Substance: TRAMADOL HYDROCHLORIDE
     Route: 048
     Dates: start: 20210218, end: 20210218
  13. DIPEPTIVEN [Concomitant]
     Active Substance: ALANYL GLUTAMINE
     Route: 048
     Dates: start: 20210316
  14. ATEZOLIZUMAB. [Suspect]
     Active Substance: ATEZOLIZUMAB
     Indication: SMALL CELL LUNG CANCER EXTENSIVE STAGE
     Dosage: MOST RECENT DOSE (1200 MG) RECEIVED ON 16/FEB/2021 PRIOR TO AE/SAE ONSET.
     Route: 041
     Dates: start: 20210107
  15. DELIX [Concomitant]
     Indication: PROPHYLAXIS
     Route: 048
     Dates: start: 20210216
  16. EXCIPIAL LIPO [Concomitant]
     Active Substance: COSMETICS
     Route: 061
     Dates: start: 20210307, end: 20210307
  17. CERNEVIT [Concomitant]
     Active Substance: VITAMINS
     Indication: PROPHYLAXIS
     Route: 042
     Dates: start: 20210217, end: 20210218
  18. NEUPOGEN [Concomitant]
     Active Substance: FILGRASTIM
     Indication: PROPHYLAXIS
     Route: 058
     Dates: start: 20210218
  19. ATIVAN EXPIDET [Concomitant]
     Route: 048
     Dates: start: 20210218
  20. PLASBUMIN [Concomitant]
     Active Substance: ALBUMIN HUMAN
     Route: 042
     Dates: start: 20210308
  21. CALCILES [Concomitant]
     Route: 042
     Dates: start: 20210330, end: 20210330
  22. MAGNESIUM SULFATE. [Concomitant]
     Active Substance: MAGNESIUM SULFATE
     Route: 042
     Dates: start: 20210326, end: 20210326
  23. PLAVIX [Concomitant]
     Active Substance: CLOPIDOGREL BISULFATE
     Indication: PROPHYLAXIS
     Route: 048
     Dates: start: 20210115, end: 20210219
  24. PAROL [Concomitant]
     Active Substance: ACETAMINOPHEN
     Indication: PROPHYLAXIS
     Route: 042
     Dates: start: 20210115
  25. EXCIPIAL LIPO [Concomitant]
     Active Substance: COSMETICS
     Route: 061
     Dates: start: 20210117
  26. SIMFLAT (TURKEY) [Concomitant]
     Indication: PROPHYLAXIS
     Route: 048
     Dates: start: 20210128
  27. CONTRAMAL [Concomitant]
     Active Substance: TRAMADOL HYDROCHLORIDE
     Indication: PROPHYLAXIS
     Route: 048
     Dates: start: 20210204
  28. BONEDRO [Concomitant]
     Indication: METASTASES TO BONE
     Route: 048
     Dates: start: 20210217, end: 20210217
  29. KAPRIL (TURKEY) [Concomitant]
     Route: 048
     Dates: start: 20210328
  30. ETOPOSIDE. [Suspect]
     Active Substance: ETOPOSIDE
     Indication: SMALL CELL LUNG CANCER EXTENSIVE STAGE
     Dosage: MOST RECENT DOSE (133.5 MG) RECEIVED ON 18/FEB/2021 PRIOR TO AE/SAE ONSET.
     Route: 042
     Dates: start: 20210107
  31. DUPHALAC [Concomitant]
     Active Substance: LACTULOSE
     Indication: PROPHYLAXIS
     Route: 048
     Dates: start: 20210107
  32. KAPRIL (TURKEY) [Concomitant]
     Route: 048
     Dates: start: 20210324, end: 20210325
  33. CALCILES [Concomitant]
     Route: 042
     Dates: start: 20210315, end: 20210315
  34. CALCILES [Concomitant]
     Route: 042
     Dates: start: 20210324
  35. MEGACE [Concomitant]
     Active Substance: MEGESTROL ACETATE
     Route: 048
     Dates: start: 20210128
  36. SIPRAKTIN [Concomitant]
     Dosage: MEDICATION DOSE: 240 TBSP
     Route: 048
     Dates: start: 20210128
  37. GERALGINE?K [Concomitant]
     Indication: PROPHYLAXIS
     Route: 048
     Dates: start: 20210217
  38. FOLBIOL [Concomitant]
     Active Substance: FOLIC ACID
     Route: 048
     Dates: start: 20210306
  39. PRIMENE [Concomitant]
     Active Substance: ALANINE\ARGININE\ASPARTIC ACID\CYSTEINE\GLUTAMIC ACID\GLYCINE\HISTIDINE\ISOLEUCINE\LEUCINE\LYSINE\METHIONINE\ORNITHINE HYDROCHLORIDE\PHENYLALANINE\PROLINE\SERINE\TAURINE\THREONINE\TRYPTOPHAN\TYROSINE\VALINE
     Route: 042
     Dates: start: 20210307, end: 20210311
  40. VOMEPRAM [Concomitant]
     Route: 042
     Dates: start: 20210318
  41. NEXIUM [Concomitant]
     Active Substance: ESOMEPRAZOLE MAGNESIUM
     Indication: PROPHYLAXIS
     Route: 048
     Dates: start: 20210107
  42. DELIX [Concomitant]
     Indication: HYPERTENSION
     Route: 048
     Dates: start: 2005
  43. ALYSE [Concomitant]
     Route: 048
     Dates: start: 20210204

REACTIONS (1)
  - Motor dysfunction [Recovering/Resolving]

NARRATIVE: CASE EVENT DATE: 20210306
